FAERS Safety Report 23270110 (Version 1)
Quarter: 2023Q4

REPORT INFORMATION
  Report Type: Report from Study
  Country: US (occurrence: US)
  Receive Date: 20231207
  Receipt Date: 20231207
  Transmission Date: 20240110
  Serious: Yes (Other)
  Sender: FDA-Public Use
  Company Number: US-AstraZeneca-CH-00520833A

PATIENT
  Age: 1 Year
  Sex: Male

DRUGS (5)
  1. ULTOMIRIS [Suspect]
     Active Substance: RAVULIZUMAB-CWVZ
     Indication: Atypical haemolytic uraemic syndrome
     Dosage: 600 MILLIGRAM, Q2W, TWO WEEKS
     Route: 042
     Dates: start: 20231129
  2. KATERZIA [Concomitant]
     Active Substance: AMLODIPINE BENZOATE
     Indication: Hypertension
     Dosage: 3 MILLILITER, BID, 190ML, (1MG/ML)
     Route: 048
     Dates: start: 20230926
  3. ISRADIPINE [Concomitant]
     Active Substance: ISRADIPINE
     Indication: Hypertension
     Dosage: 1 MILLIGRAM PER MILLILITRE, QD, PRN, (30ML)
     Route: 048
     Dates: start: 20230906, end: 20230906
  4. ISRADIPINE [Concomitant]
     Active Substance: ISRADIPINE
     Dosage: 1 MILLIGRAM PER MILLILITRE, QD, PRN, (30ML), IF BLOOD PRESSURE IS MORE THAN 120
     Route: 048
     Dates: start: 20230906
  5. Lmx [Concomitant]
     Indication: Product used for unknown indication
     Dosage: 1 DOSAGE FORM
     Route: 061
     Dates: start: 20231129

REACTIONS (4)
  - Anaphylactic reaction [Unknown]
  - Dyspnoea [Unknown]
  - Pruritus [Unknown]
  - Infusion related reaction [Unknown]

NARRATIVE: CASE EVENT DATE: 20231129
